FAERS Safety Report 13149627 (Version 3)
Quarter: 2017Q1

REPORT INFORMATION
  Report Type: Spontaneous
  Country: US (occurrence: US)
  Receive Date: 20170125
  Receipt Date: 20170228
  Transmission Date: 20170428
  Serious: Yes (Hospitalization, Other)
  Sender: FDA-Public Use
  Company Number: US-PFIZER INC-2017026683

PATIENT
  Age: 60 Year
  Sex: Male
  Weight: 98.88 kg

DRUGS (2)
  1. CHANTIX [Suspect]
     Active Substance: VARENICLINE TARTRATE
     Indication: SMOKING CESSATION THERAPY
     Dosage: UNK
     Dates: start: 20170107, end: 20170107
  2. CHANTIX [Suspect]
     Active Substance: VARENICLINE TARTRATE
     Dosage: 0.5 MG, UNK
     Dates: start: 20170108, end: 20170115

REACTIONS (16)
  - Urinary tract infection [Recovering/Resolving]
  - Lymphadenopathy [Not Recovered/Not Resolved]
  - Malaise [Unknown]
  - Urinary tract disorder [Unknown]
  - Chills [Recovered/Resolved]
  - Myocardial necrosis marker increased [Unknown]
  - Hepatic enzyme abnormal [Unknown]
  - Tremor [Recovered/Resolved]
  - Dysuria [Recovering/Resolving]
  - Micturition urgency [Not Recovered/Not Resolved]
  - Blood urine present [Unknown]
  - Chest discomfort [Recovered/Resolved]
  - Body temperature increased [Recovered/Resolved]
  - Prostate examination abnormal [Unknown]
  - Escherichia infection [Unknown]
  - Prostatic disorder [Unknown]

NARRATIVE: CASE EVENT DATE: 201701
